FAERS Safety Report 5492353-0 (Version None)
Quarter: 2007Q4

REPORT INFORMATION
  Report Type: 
  Country: None (occurrence: None)
  Receive Date: 20071022
  Receipt Date: 20071016
  Transmission Date: 20080405
  Serious: Yes (Hospitalization)
  Sender: FDA-Public Use
  Company Number: HQWYE765708AUG05

PATIENT
  Sex: Male

DRUGS (26)
  1. RAPAMUNE [Suspect]
     Indication: PROPHYLAXIS AGAINST TRANSPLANT REJECTION
     Route: 048
     Dates: start: 20050106, end: 20050101
  2. RAPAMUNE [Suspect]
     Route: 048
     Dates: start: 20050101
  3. RAPAMUNE [Suspect]
     Route: 048
  4. CELLCEPT [Suspect]
     Indication: PROPHYLAXIS AGAINST TRANSPLANT REJECTION
     Dosage: UNSPECIFIED
     Route: 048
     Dates: end: 20050101
  5. PREDNISONE [Suspect]
     Indication: PROPHYLAXIS AGAINST TRANSPLANT REJECTION
     Route: 048
  6. LOPRESSOR [Concomitant]
  7. LASIX [Concomitant]
     Dates: end: 20050601
  8. LASIX [Concomitant]
     Route: 048
     Dates: start: 20050601, end: 20050101
  9. LASIX [Concomitant]
     Route: 048
     Dates: start: 20050101, end: 20050802
  10. CLONIDINE [Concomitant]
     Indication: HYPERTENSION
     Route: 048
     Dates: end: 20050601
  11. CLONIDINE [Concomitant]
     Route: 048
     Dates: start: 20050101, end: 20050802
  12. CLONIDINE [Concomitant]
     Dosage: 0.1 MG EVERY 4 HOURS FOR SYSTOLIC PRESSURE OVER 170
     Route: 048
     Dates: start: 20050802
  13. NORVASC [Concomitant]
     Dates: end: 20050802
  14. FLOMAX [Concomitant]
     Dates: end: 20050802
  15. ACYCLOVIR [Concomitant]
     Route: 048
     Dates: end: 20050802
  16. LIPITOR [Concomitant]
     Route: 048
     Dates: end: 20050802
  17. DAPSONE [Concomitant]
     Route: 048
     Dates: end: 20050601
  18. DAPSONE [Concomitant]
     Route: 048
     Dates: start: 20050101, end: 20050802
  19. MACRODANTIN [Concomitant]
     Dates: end: 20050601
  20. MACRODANTIN [Concomitant]
     Dates: start: 20050101, end: 20050801
  21. LANTUS [Concomitant]
     Dosage: 12 UNIT EVERY 1 DAY
  22. NOVOLOG [Concomitant]
     Dosage: SLIDING SCALE PER PROTOCOL
  23. PROCRIT [Concomitant]
     Indication: ANAEMIA
     Dosage: 20000 UNIT EVERY 1 WK
     Route: 058
     Dates: end: 20050101
  24. PROCRIT [Concomitant]
     Dosage: 20000 UNIT EVERY 1 WK
     Route: 058
     Dates: start: 20050101, end: 20050802
  25. PROCRIT [Concomitant]
     Dosage: 20000 UNIT EVERY 1 WK
     Route: 058
     Dates: start: 20050802
  26. ZENAPAX [Suspect]
     Indication: PROPHYLAXIS AGAINST TRANSPLANT REJECTION
     Dosage: UNSPECIFIED

REACTIONS (5)
  - BLOOD GLUCOSE INCREASED [None]
  - BRONCHITIS [None]
  - HEPATITIS [None]
  - NEPHRITIS INTERSTITIAL [None]
  - RENAL FAILURE [None]
